FAERS Safety Report 7941346-X (Version None)
Quarter: 2011Q4

REPORT INFORMATION
  Report Type: 
  Country: None (occurrence: None)
  Receive Date: 20111128
  Receipt Date: 20111118
  Transmission Date: 20120403
  Serious: Yes (Other)
  Sender: FDA-Public Use
  Company Number: US-US-EMD SERONO, INC.-7080732

PATIENT
  Sex: Female

DRUGS (2)
  1. REBIF [Suspect]
     Indication: MULTIPLE SCLEROSIS
     Dates: start: 20040101, end: 20080101
  2. REBIF [Suspect]
     Route: 058
     Dates: start: 20100902

REACTIONS (6)
  - MEMORY IMPAIRMENT [None]
  - WHITE BLOOD CELL COUNT DECREASED [None]
  - INTERVERTEBRAL DISC DEGENERATION [None]
  - CENTRAL NERVOUS SYSTEM LESION [None]
  - RAYNAUD'S PHENOMENON [None]
  - INJECTION SITE PAIN [None]
